FAERS Safety Report 20506058 (Version 2)
Quarter: 2022Q1

REPORT INFORMATION
  Report Type: Other
  Country: IT (occurrence: None)
  Receive Date: 20220223
  Receipt Date: 20220310
  Transmission Date: 20220424
  Serious: Yes (Other)
  Sender: FDA-Public Use
  Company Number: IT-ROCHE-2637797

PATIENT
  Age: 55 Year
  Sex: Female

DRUGS (4)
  1. OBINUTUZUMAB [Suspect]
     Active Substance: OBINUTUZUMAB
     Indication: Follicular lymphoma
     Dosage: ON DAY 1, 8, 15 OF CYCLE 1 AND DAY 1 OF CYCLES 2-6 OR 2-8 (AS PER PROTOCOL).
     Route: 042
     Dates: start: 20200310
  2. OBINUTUZUMAB [Suspect]
     Active Substance: OBINUTUZUMAB
     Route: 042
  3. FOSFOMICINA [Concomitant]
     Dates: start: 20210417
  4. CLARITHROMYCIN [Concomitant]
     Active Substance: CLARITHROMYCIN
     Dates: start: 19700101

REACTIONS (8)
  - Neutropenia [Recovered/Resolved]
  - Osteoarthritis [Not Recovered/Not Resolved]
  - Neutropenia [Recovered/Resolved]
  - Off label use [Unknown]
  - Cystitis [Recovered/Resolved]
  - Diarrhoea [Recovered/Resolved]
  - Constipation [Recovered/Resolved]
  - COVID-19 [Recovered/Resolved]

NARRATIVE: CASE EVENT DATE: 20200316
